FAERS Safety Report 5506185-8 (Version None)
Quarter: 2007Q4

REPORT INFORMATION
  Report Type: 
  Country: None (occurrence: None)
  Receive Date: 20071105
  Receipt Date: 20071029
  Transmission Date: 20080405
  Serious: Yes (Other)
  Sender: FDA-Public Use
  Company Number: US-SP-2007-02775

PATIENT
  Age: 14 Year
  Sex: Female

DRUGS (3)
  1. TUBERSOL [Suspect]
     Indication: TUBERCULIN TEST
     Route: 065
     Dates: start: 20070803
  2. TUBERSOL [Suspect]
     Route: 065
     Dates: start: 20070803
  3. MENACTRA [Concomitant]
     Indication: IMMUNISATION
     Route: 065
     Dates: start: 20070724

REACTIONS (2)
  - CHEST X-RAY ABNORMAL [None]
  - TUBERCULOSIS SKIN TEST POSITIVE [None]
